FAERS Safety Report 21284590 (Version 2)
Quarter: 2022Q4

REPORT INFORMATION
  Report Type: Spontaneous
  Country: BR (occurrence: BR)
  Receive Date: 20220902
  Receipt Date: 20221010
  Transmission Date: 20230112
  Serious: Yes (Other)
  Sender: FDA-Public Use
  Company Number: BR-CELLTRION INC.-2022BR014229

PATIENT

DRUGS (6)
  1. INFLIXIMAB [Suspect]
     Active Substance: INFLIXIMAB
     Indication: Colitis ulcerative
     Dosage: 4 AMPOULES (100MG) EVERY 2 MONTHS
     Route: 042
     Dates: start: 20220721
  2. INFLIXIMAB [Suspect]
     Active Substance: INFLIXIMAB
     Dosage: 4 AMPOULES IN THE FIRST TWO WEEKS OF TREATMENT; AFTER TWO WEEKS MORE 4 AMPOULES; THEN WAIT ANOTHER 4
  3. INFLIXIMAB [Suspect]
     Active Substance: INFLIXIMAB
     Dosage: FOUR AMPOULES, 100MG
     Route: 042
     Dates: start: 20220919
  4. AZATHIOPRINE [Concomitant]
     Active Substance: AZATHIOPRINE
     Indication: Colitis
     Dosage: 3 PILLS PER DAY
     Route: 048
     Dates: start: 20220610
  5. ESCITALOPRAM [Concomitant]
     Active Substance: ESCITALOPRAM OXALATE
     Indication: Depression
     Dosage: 1 PILL PER DAY
     Route: 048
  6. ALPRAZOLAM [Concomitant]
     Active Substance: ALPRAZOLAM
     Indication: Depression
     Dosage: 1 PILL PER DAY
     Route: 048

REACTIONS (3)
  - Abdominal pain upper [Recovered/Resolved]
  - COVID-19 [Unknown]
  - Off label use [Unknown]

NARRATIVE: CASE EVENT DATE: 20211101
